FAERS Safety Report 18215718 (Version 1)
Quarter: 2020Q3

REPORT INFORMATION
  Report Type: Spontaneous
  Country: GB (occurrence: GB)
  Receive Date: 20200831
  Receipt Date: 20200831
  Transmission Date: 20201103
  Serious: Yes (Other)
  Sender: FDA-Public Use
  Company Number: GB-ACCORD-198223

PATIENT
  Age: 67 Year
  Sex: Male
  Weight: 63 kg

DRUGS (10)
  1. HYDROXYCHLOROQUINE [Concomitant]
     Active Substance: HYDROXYCHLOROQUINE
     Dates: start: 20191216
  2. INDAPAMIDE. [Concomitant]
     Active Substance: INDAPAMIDE
     Dosage: EACH MORNING.
     Dates: start: 20190405
  3. ATORVASTATIN/ATORVASTATIN CALCIUM [Suspect]
     Active Substance: ATORVASTATIN CALCIUM
     Indication: PRODUCT USED FOR UNKNOWN INDICATION
     Dates: start: 20200218
  4. ROSUVASTATIN/ROSUVASTATIN CALCIUM [Concomitant]
     Active Substance: ROSUVASTATIN CALCIUM
     Dates: start: 20200811, end: 20200811
  5. METHOTREXATE. [Concomitant]
     Active Substance: METHOTREXATE
     Dates: start: 20191014
  6. FOLIC ACID. [Concomitant]
     Active Substance: FOLIC ACID
     Dosage: AS DIRECTED BY HOSPITAL
     Dates: start: 20200811
  7. DICLOFENAC [Concomitant]
     Active Substance: DICLOFENAC
     Dates: start: 20190405
  8. ZAPAIN [Concomitant]
     Active Substance: ACETAMINOPHEN\CODEINE PHOSPHATE
     Dosage: ONE OR TWO TO BE TAKEN FOUR TIMES A DAY WHEN RE...
     Dates: start: 20190405
  9. AMLODIPINE [Concomitant]
     Active Substance: AMLODIPINE BESYLATE
     Dates: start: 20191113
  10. SIMVASTATIN. [Concomitant]
     Active Substance: SIMVASTATIN
     Dosage: AT NIGHT
     Dates: start: 20200811

REACTIONS (3)
  - Diarrhoea [Recovered/Resolved]
  - Fatigue [Recovered/Resolved]
  - Hyperhidrosis [Recovered/Resolved]

NARRATIVE: CASE EVENT DATE: 20200811
